FAERS Safety Report 9735920 (Version 1)
Quarter: 2013Q4

REPORT INFORMATION
  Report Type: Spontaneous
  Country: US (occurrence: None)
  Receive Date: 20131204
  Receipt Date: 20131204
  Transmission Date: 20140711
  Serious: Yes (Hospitalization)
  Sender: FDA-Public Use
  Company Number: 2013-1627

PATIENT
  Age: 68 Year
  Sex: Female

DRUGS (2)
  1. KYPROLIS [Suspect]
     Indication: PLASMA CELL MYELOMA
     Route: 042
     Dates: start: 2013, end: 201309
  2. MORPHINE(MORPHINE)(MORPHINE) [Concomitant]
     Route: 042
     Dates: end: 201309

REACTIONS (10)
  - Dehydration [None]
  - Blood calcium increased [None]
  - Confusional state [None]
  - Abdominal pain upper [None]
  - Diverticulitis [None]
  - Abscess intestinal [None]
  - Local swelling [None]
  - Local swelling [None]
  - Blood potassium increased [None]
  - Asthenia [None]
